FAERS Safety Report 19024105 (Version 2)
Quarter: 2021Q4

REPORT INFORMATION
  Report Type: Report from Study
  Country: PL (occurrence: PL)
  Receive Date: 20210317
  Receipt Date: 20211020
  Transmission Date: 20220303
  Serious: Yes (Death)
  Sender: FDA-Public Use
  Company Number: PL-PFIZER INC-2019321305

PATIENT

DRUGS (4)
  1. DOXORUBICIN HYDROCHLORIDE [Suspect]
     Active Substance: DOXORUBICIN HYDROCHLORIDE
     Indication: Soft tissue sarcoma
     Dosage: 25 MG/M2 PER DAY, DAYS 1-3
  2. IFOSFAMIDE [Suspect]
     Active Substance: IFOSFAMIDE
     Indication: Soft tissue sarcoma
     Dosage: 2.5 G/M2 PER DAY, DAYS 1-4
  3. MESNA [Concomitant]
     Active Substance: MESNA
     Indication: Soft tissue sarcoma
     Dosage: UNK
  4. PEGFILGRASTIM [Concomitant]
     Active Substance: PEGFILGRASTIM
     Indication: Soft tissue sarcoma
     Dosage: 6 MG, DAY 5
     Route: 058

REACTIONS (2)
  - Pancytopenia [Fatal]
  - Septic shock [Fatal]
